FAERS Safety Report 4985657-9 (Version None)
Quarter: 2006Q2

REPORT INFORMATION
  Report Type: 
  Country: None (occurrence: None)
  Receive Date: 20060428
  Receipt Date: 20050308
  Transmission Date: 20061013
  Serious: No
  Sender: FDA-Public Use
  Company Number: US-GLAXOSMITHKLINE-A0548836A

PATIENT
  Age: 11 Month
  Sex: Female

DRUGS (3)
  1. ZOFRAN [Suspect]
     Indication: GASTROENTERITIS
     Dosage: 6MG PER DAY
     Route: 042
     Dates: start: 20050307, end: 20050307
  2. PEDIALYTE [Concomitant]
  3. ROCEPHIN [Concomitant]

REACTIONS (3)
  - DYSTONIA [None]
  - LIVEDO RETICULARIS [None]
  - MYDRIASIS [None]
